FAERS Safety Report 5733970-X (Version None)
Quarter: 2008Q2

REPORT INFORMATION
  Report Type: 
  Country: None (occurrence: None)
  Receive Date: 20080509
  Receipt Date: 20080428
  Transmission Date: 20081010
  Serious: Yes (Other)
  Sender: FDA-Public Use
  Company Number: US-PFIZER INC-2008037574

PATIENT
  Sex: Female
  Weight: 147 kg

DRUGS (4)
  1. LYRICA [Suspect]
     Indication: FIBROMYALGIA
     Dates: start: 20070101, end: 20070101
  2. LASIX [Interacting]
     Indication: SWELLING
  3. DEMADEX [Concomitant]
  4. ALL OTHER THERAPEUTIC PRODUCTS [Concomitant]

REACTIONS (2)
  - CHEST PAIN [None]
  - SWELLING [None]
